FAERS Safety Report 24769221 (Version 1)
Quarter: 2024Q4

REPORT INFORMATION
  Report Type: Spontaneous
  Country: KR (occurrence: KR)
  Receive Date: 20241224
  Receipt Date: 20241224
  Transmission Date: 20250115
  Serious: Yes (Hospitalization)
  Sender: CELLTRION
  Company Number: KR-CELLTRION INC.-2024KR032095

PATIENT

DRUGS (19)
  1. INFLIXIMAB [Suspect]
     Active Substance: INFLIXIMAB
     Indication: Rheumatoid arthritis
     Dosage: UNK
     Route: 058
     Dates: start: 20240620, end: 20241011
  2. META KIT [Concomitant]
     Indication: Antibiotic therapy
     Dosage: 1 VIA (SINGLE DOSE), QD
     Route: 042
     Dates: start: 20241028, end: 20241030
  3. HYDROCORTISONE SODIUM SUCCINATE [Concomitant]
     Active Substance: HYDROCORTISONE SODIUM SUCCINATE
     Indication: Preoperative care
     Dosage: 1 BTL (SINGLE DOSE), BID, GARGLING
     Dates: start: 20241028, end: 20241028
  4. CALCIUM CHLORIDE\POTASSIUM CHLORIDE\SODIUM CHLORIDE\SODIUM LACTATE [Concomitant]
     Active Substance: CALCIUM CHLORIDE\POTASSIUM CHLORIDE\SODIUM CHLORIDE\SODIUM LACTATE
     Indication: Fluid replacement
     Dosage: 1 BAG (SINGLE DOSE), QD
     Route: 042
     Dates: start: 20241028, end: 20241030
  5. LIDOCAINE [Concomitant]
     Active Substance: LIDOCAINE
     Indication: Anaesthesia
     Dosage: 1 VIA (SINGLE DOSE), ONE
     Route: 042
     Dates: start: 20241029, end: 20241029
  6. ROCURONIUM BROMIDE [Concomitant]
     Active Substance: ROCURONIUM BROMIDE
     Indication: Anaesthesia
     Dosage: 1 VIA (SINGLE DOSE), ONE
     Route: 042
     Dates: start: 20241029, end: 20241029
  7. REMIVA [Concomitant]
     Indication: Anaesthesia
     Dosage: 1 VIA (SINGLE DOSE), ONE
     Route: 042
     Dates: start: 20241029, end: 20241029
  8. FRESOFOL MCT [Concomitant]
     Indication: Anaesthesia
     Dosage: 1 VIA (SINGLE DOSE), ONE
     Route: 042
     Dates: start: 20241029, end: 20241029
  9. BRESIS [SUGAMMADEX SODIUM] [Concomitant]
     Indication: Anaesthesia
     Dosage: 1 VIA (SINGLE DOSE), ONE
     Route: 042
     Dates: start: 20241029, end: 20241029
  10. FENTANYL [Concomitant]
     Active Substance: FENTANYL
     Indication: Pain management
     Dosage: 1 AMP (SINGLE DOSE), PRN
     Route: 042
     Dates: start: 20241029, end: 20241029
  11. PROPACETAMOL HYDROCHLORIDE [Concomitant]
     Active Substance: PROPACETAMOL HYDROCHLORIDE
     Indication: Pyrexia
     Dosage: 1 VIA (SINGLE DOSE), PRN
     Route: 042
     Dates: start: 20241028, end: 20241030
  12. TYLENOL 8HR [Concomitant]
     Active Substance: ACETAMINOPHEN
     Indication: Pain management
     Dosage: 1 TAB (SINGLE DOSE), BID
     Route: 048
     Dates: start: 20241030, end: 20241107
  13. SULFOLASE [Concomitant]
     Indication: Antitussive therapy
     Dosage: 1 CAP (SINGLE DOSE), BID
     Route: 048
     Dates: start: 20241030, end: 20241107
  14. GASTER [Concomitant]
     Active Substance: FAMOTIDINE
     Indication: Gastrointestinal disorder prophylaxis
     Dosage: 1 TAB (SINGLE DOSE), BID
     Route: 048
     Dates: start: 20241030, end: 20241107
  15. TWOLION [Concomitant]
     Indication: Antiallergic therapy
     Dosage: 1 TAB (SINGLE DOSE), BID
     Route: 048
     Dates: start: 20241030
  16. LAFUTIDINE [Concomitant]
     Active Substance: LAFUTIDINE
     Indication: Gastrointestinal disorder prophylaxis
     Dosage: 1 TAB (SINGLE DOSE), BID
     Route: 048
     Dates: start: 20241031
  17. CEFDITOREN PIVOXIL [Concomitant]
     Active Substance: CEFDITOREN PIVOXIL
     Indication: Antibiotic therapy
     Dosage: 1 TAB (SINGLE DOSE), TID
     Route: 048
     Dates: start: 20241031, end: 20241107
  18. FLUTICASONE FUROATE [Concomitant]
     Active Substance: FLUTICASONE FUROATE
     Indication: Antiinflammatory therapy
     Dosage: 1 SPRAY (SINGLE DOSE), BID, SPRAY
     Dates: start: 20241031, end: 20241107
  19. BORYUNG ACETYLCYSTEINE [Concomitant]
     Indication: Mucolytic treatment
     Dosage: 2 AMP (SINGLE DOSE), BID
     Dates: start: 20241031

REACTIONS (4)
  - Nasal septum deviation [Recovered/Resolved]
  - Nasal polypectomy [Recovered/Resolved]
  - Nasal polyps [Recovered/Resolved]
  - Chronic sinusitis [Recovered/Resolved]

NARRATIVE: CASE EVENT DATE: 20241028
